FAERS Safety Report 24918079 (Version 4)
Quarter: 2025Q3

REPORT INFORMATION
  Report Type: Spontaneous
  Country: CA (occurrence: CA)
  Receive Date: 20250203
  Receipt Date: 20250730
  Transmission Date: 20251021
  Serious: Yes (Other)
  Sender: PFIZER
  Company Number: CA-PFIZER INC-202500021457

PATIENT
  Age: 49 Year
  Sex: Female

DRUGS (6)
  1. METHOTREXATE SODIUM [Suspect]
     Active Substance: METHOTREXATE SODIUM
     Indication: Crohn^s disease
     Dosage: 20 MG, WEEKLY
  2. METHOTREXATE SODIUM [Suspect]
     Active Substance: METHOTREXATE SODIUM
  3. INFLECTRA [Concomitant]
     Active Substance: INFLIXIMAB-DYYB
  4. IXIFI [Concomitant]
     Active Substance: INFLIXIMAB-QBTX
     Indication: Crohn^s disease
     Route: 042
     Dates: start: 20250728
  5. PANTOPRAZOLE [Concomitant]
     Active Substance: PANTOPRAZOLE
  6. PREDNISONE [Concomitant]
     Active Substance: PREDNISONE

REACTIONS (13)
  - Haematochezia [Unknown]
  - Terminal ileitis [Unknown]
  - Arthropathy [Unknown]
  - Bronchitis [Unknown]
  - Constipation [Unknown]
  - COVID-19 [Unknown]
  - Condition aggravated [Unknown]
  - Dyspepsia [Unknown]
  - Abdominal discomfort [Unknown]
  - Emotional disorder [Unknown]
  - Viral infection [Recovered/Resolved]
  - Arthralgia [Not Recovered/Not Resolved]
  - Off label use [Unknown]

NARRATIVE: CASE EVENT DATE: 20230530
